FAERS Safety Report 17294335 (Version 1)
Quarter: 2020Q1

REPORT INFORMATION
  Report Type: Spontaneous
  Country: US (occurrence: US)
  Receive Date: 20200119
  Receipt Date: 20200119
  Transmission Date: 20200409
  Serious: Yes (Other)
  Sender: FDA-Public Use
  Company Number: None

PATIENT
  Age: 39 Year
  Sex: Female
  Weight: 90.27 kg

DRUGS (8)
  1. PARAGARD T 380A [Suspect]
     Active Substance: COPPER
     Dates: start: 20150620
  2. SUGAR BEAR HAIR VITAMINS [Concomitant]
  3. ELDERBERRY [Concomitant]
     Active Substance: HERBALS
  4. FISH OIL [Concomitant]
     Active Substance: FISH OIL
  5. ZINC. [Concomitant]
     Active Substance: ZINC
  6. VITAMIN C [Concomitant]
     Active Substance: ASCORBIC ACID
  7. ALBUTEROL. [Concomitant]
     Active Substance: ALBUTEROL
  8. VITAMIN D [Concomitant]
     Active Substance: VITAMIN D NOS

REACTIONS (9)
  - Migraine [None]
  - Gluten sensitivity [None]
  - Dairy intolerance [None]
  - Panic attack [None]
  - Arthralgia [None]
  - Headache [None]
  - Anxiety [None]
  - Autoimmune disorder [None]
  - Weight increased [None]
